FAERS Safety Report 19449572 (Version 2)
Quarter: 2021Q3

REPORT INFORMATION
  Report Type: Report from Study
  Country: MX (occurrence: MX)
  Receive Date: 20210622
  Receipt Date: 20210701
  Transmission Date: 20211014
  Serious: Yes (Death)
  Sender: FDA-Public Use
  Company Number: NVSC2021MX139923

PATIENT
  Age: 87 Year
  Sex: Male
  Weight: 84 kg

DRUGS (1)
  1. EXFORGE [Suspect]
     Active Substance: AMLODIPINE BESYLATE\VALSARTAN
     Indication: HYPERTENSION
     Dosage: 1 DF, QD (320/5MG)
     Route: 048

REACTIONS (5)
  - Internal haemorrhage [Fatal]
  - Myocardial infarction [Fatal]
  - Heart rate increased [Fatal]
  - COVID-19 [Recovered/Resolved with Sequelae]
  - Bronchitis [Fatal]

NARRATIVE: CASE EVENT DATE: 202103
